FAERS Safety Report 15095293 (Version 1)
Quarter: 2018Q3

REPORT INFORMATION
  Report Type: Spontaneous
  Country: US (occurrence: US)
  Receive Date: 20180702
  Receipt Date: 20180702
  Transmission Date: 20181010
  Serious: No
  Sender: FDA-Public Use
  Company Number: US-GLENMARK PHARMACEUTICALS-2018GMK031475

PATIENT

DRUGS (1)
  1. MUPIROCIN. [Suspect]
     Active Substance: MUPIROCIN
     Indication: IMPETIGO
     Dosage: UNK
     Route: 065
     Dates: start: 20180123

REACTIONS (6)
  - Application site vesicles [Recovered/Resolved]
  - Pain [Unknown]
  - Application site erythema [Recovering/Resolving]
  - Infection [Unknown]
  - Application site swelling [Recovering/Resolving]
  - Application site pain [Recovering/Resolving]
